FAERS Safety Report 5253947-0 (Version None)
Quarter: 2007Q1

REPORT INFORMATION
  Report Type: 
  Country: None (occurrence: None)
  Receive Date: 20070228
  Receipt Date: 20070228
  Transmission Date: 20070707
  Serious: Yes (Hospitalization)
  Sender: FDA-Public Use
  Company Number: None

PATIENT
  Sex: Male
  Weight: 128 kg

DRUGS (11)
  1. AVASTIN [Suspect]
     Indication: RECTAL CANCER METASTATIC
     Dosage: 640MG  EVERY 2 WEEKS IV
     Route: 042
     Dates: start: 20061114, end: 20070219
  2. ASPIRIN [Concomitant]
  3. RANITIDINE [Concomitant]
  4. MULTI-VITAMIN [Concomitant]
  5. LEVAQUIN [Concomitant]
  6. PROCHLORPERAZINE [Concomitant]
  7. LOMOTIL [Concomitant]
  8. LORAZEPAM [Concomitant]
  9. OXALIPLATIN [Concomitant]
  10. LEUCOVORIN CALCIUM [Concomitant]
  11. FLUOROURACIL [Concomitant]

REACTIONS (8)
  - ANASTOMOTIC COMPLICATION [None]
  - ANORECTAL DISORDER [None]
  - INTESTINAL ISCHAEMIA [None]
  - MUCOSAL ULCERATION [None]
  - PROCEDURAL SITE REACTION [None]
  - RECTAL CANCER RECURRENT [None]
  - RECTAL HAEMORRHAGE [None]
  - THROMBOSIS [None]
